FAERS Safety Report 25451516 (Version 1)
Quarter: 2025Q2

REPORT INFORMATION
  Report Type: Spontaneous
  Country: FR (occurrence: FR)
  Receive Date: 20250618
  Receipt Date: 20250618
  Transmission Date: 20250717
  Serious: Yes (Other)
  Sender: MYLAN
  Company Number: FR-ORPHANEU-2025003875

PATIENT
  Age: 24 Year
  Sex: Female

DRUGS (12)
  1. PREDNISONE [Suspect]
     Active Substance: PREDNISONE
     Indication: Still^s disease
     Dosage: 35 MILLIGRAM, QD (35 MG/DAY)
     Dates: start: 201701, end: 202008
  2. PREDNISONE [Suspect]
     Active Substance: PREDNISONE
     Dosage: 35 MILLIGRAM, QD (35 MG/DAY)
     Dates: start: 201701, end: 202008
  3. PREDNISONE [Suspect]
     Active Substance: PREDNISONE
     Dosage: 35 MILLIGRAM, QD (35 MG/DAY)
     Route: 065
     Dates: start: 201701, end: 202008
  4. PREDNISONE [Suspect]
     Active Substance: PREDNISONE
     Dosage: 35 MILLIGRAM, QD (35 MG/DAY)
     Route: 065
     Dates: start: 201701, end: 202008
  5. PREDNISONE [Suspect]
     Active Substance: PREDNISONE
     Dosage: 10 MILLIGRAM, QD (10 MG/DAY AT 9 MONTHS AND MAINTAINED AT 2 AND 3 YEARS)
  6. PREDNISONE [Suspect]
     Active Substance: PREDNISONE
     Dosage: 10 MILLIGRAM, QD (10 MG/DAY AT 9 MONTHS AND MAINTAINED AT 2 AND 3 YEARS)
  7. PREDNISONE [Suspect]
     Active Substance: PREDNISONE
     Dosage: 10 MILLIGRAM, QD (10 MG/DAY AT 9 MONTHS AND MAINTAINED AT 2 AND 3 YEARS)
     Route: 065
  8. PREDNISONE [Suspect]
     Active Substance: PREDNISONE
     Dosage: 10 MILLIGRAM, QD (10 MG/DAY AT 9 MONTHS AND MAINTAINED AT 2 AND 3 YEARS)
     Route: 065
  9. SILTUXIMAB [Suspect]
     Active Substance: SILTUXIMAB
     Indication: Still^s disease
     Dosage: 11 MILLIGRAM/KILOGRAM, Q3W (LYOPHILIZED POWDER, 11  MG/KG EVERY 3 WEEKS)
     Dates: start: 201701, end: 202008
  10. SILTUXIMAB [Suspect]
     Active Substance: SILTUXIMAB
     Dosage: 11 MILLIGRAM/KILOGRAM, Q3W (LYOPHILIZED POWDER, 11  MG/KG EVERY 3 WEEKS)
     Route: 065
     Dates: start: 201701, end: 202008
  11. SILTUXIMAB [Suspect]
     Active Substance: SILTUXIMAB
     Dosage: 11 MILLIGRAM/KILOGRAM, Q3W (LYOPHILIZED POWDER, 11  MG/KG EVERY 3 WEEKS)
     Route: 065
     Dates: start: 201701, end: 202008
  12. SILTUXIMAB [Suspect]
     Active Substance: SILTUXIMAB
     Dosage: 11 MILLIGRAM/KILOGRAM, Q3W (LYOPHILIZED POWDER, 11  MG/KG EVERY 3 WEEKS)
     Dates: start: 201701, end: 202008

REACTIONS (2)
  - Hepatic cytolysis [Unknown]
  - Off label use [Recovered/Resolved]

NARRATIVE: CASE EVENT DATE: 20170101
